FAERS Safety Report 19070214 (Version 1)
Quarter: 2021Q1

REPORT INFORMATION
  Report Type: Spontaneous
  Country: GB (occurrence: GB)
  Receive Date: 20210329
  Receipt Date: 20210329
  Transmission Date: 20210420
  Serious: Yes (Hospitalization)
  Sender: FDA-Public Use
  Company Number: GB-ELI_LILLY_AND_COMPANY-GB202103012312

PATIENT
  Age: 66 Year
  Sex: Female
  Weight: 70 kg

DRUGS (7)
  1. DOCUSATE SODIUM. [Concomitant]
     Active Substance: DOCUSATE SODIUM
     Indication: ILL-DEFINED DISORDER
     Dosage: UNK, UNKNOWN
     Route: 065
  2. OLANZAPINE. [Suspect]
     Active Substance: OLANZAPINE
     Indication: SCHIZOAFFECTIVE DISORDER
     Dosage: 20 MG, UNKNOWN
     Route: 048
  3. SENNA ALATA ROOT [Concomitant]
     Indication: ILL-DEFINED DISORDER
     Dosage: UNK, UNKNOWN
     Route: 065
  4. ZOPICLON [Suspect]
     Active Substance: ZOPICLONE
     Indication: SCHIZOAFFECTIVE DISORDER
     Dosage: 7.5 DOSAGE FORM, PRN
     Route: 048
  5. PROMETHAZINE HYDROCHLORIDE. [Suspect]
     Active Substance: PROMETHAZINE HYDROCHLORIDE
     Indication: SCHIZOAFFECTIVE DISORDER
     Dosage: 25 MG, UNKNOWN
     Route: 048
  6. FLUOXETINE HYDROCHLORIDE. [Suspect]
     Active Substance: FLUOXETINE HYDROCHLORIDE
     Indication: DEPRESSION
     Dosage: 40 MG, UNKNOWN
     Route: 048
  7. COLECALCIFEROL [Concomitant]
     Active Substance: CHOLECALCIFEROL
     Indication: ILL-DEFINED DISORDER
     Dosage: UNK, UNKNOWN
     Route: 065

REACTIONS (1)
  - Neuroleptic malignant syndrome [Recovering/Resolving]

NARRATIVE: CASE EVENT DATE: 20210311
